FAERS Safety Report 6113680 (Version 3)
Quarter: 2018Q3

REPORT INFORMATION
  Report Type: Spontaneous
  Country: JP (occurrence: JP)
  Receive Date: 20060823
  Receipt Date: 20180803
  Transmission Date: 20181010
  Serious: Yes (Hospitalization)
  Sender: FDA-Public Use
  Company Number: PHBS2006JP07231

PATIENT
  Age: 9 Year
  Sex: Female

DRUGS (9)
  1. LEUNASE [Concomitant]
     Active Substance: ASPARAGINASE
     Dosage: 9.6 KIU, QD
     Route: 042
     Dates: start: 20060508, end: 20060508
  2. MODACIN [Concomitant]
     Active Substance: CEFTAZIDIME
     Indication: PRODUCT USED FOR UNKNOWN INDICATION
     Dosage: 800 MG, TID
     Route: 042
     Dates: start: 20060511, end: 20060517
  3. LEUNASE [Concomitant]
     Active Substance: ASPARAGINASE
     Dosage: 9.6 KIU, QD
     Route: 042
     Dates: start: 20060504, end: 20060504
  4. ONCOVIN [Concomitant]
     Active Substance: VINCRISTINE SULFATE
     Indication: PRODUCT USED FOR UNKNOWN INDICATION
     Dosage: UNK
     Route: 042
     Dates: start: 20060501, end: 20060501
  5. ONCOVIN [Concomitant]
     Active Substance: VINCRISTINE SULFATE
     Dosage: UNK
     Route: 042
     Dates: start: 20060508, end: 20060508
  6. ADRIACIN [Concomitant]
     Active Substance: DOXORUBICIN HYDROCHLORIDE
     Indication: PRODUCT USED FOR UNKNOWN INDICATION
     Dosage: UNK
     Route: 042
     Dates: start: 20060501, end: 20060501
  7. GLIVEC [Suspect]
     Active Substance: IMATINIB MESYLATE
     Indication: ACUTE LYMPHOCYTIC LEUKAEMIA
     Dosage: 300 MG, QD
     Route: 048
     Dates: start: 20060502, end: 20060502
  8. GLIVEC [Suspect]
     Active Substance: IMATINIB MESYLATE
     Dosage: 600 MG, QD
     Route: 048
     Dates: start: 20060503, end: 20060516
  9. LEUNASE [Concomitant]
     Active Substance: ASPARAGINASE
     Indication: PRODUCT USED FOR UNKNOWN INDICATION
     Dosage: 9.6 KIU, QD
     Route: 042
     Dates: start: 20060501, end: 20060501

REACTIONS (11)
  - Hyponatraemia [Recovering/Resolving]
  - Amylase increased [Recovered/Resolved]
  - Hypertension [Recovering/Resolving]
  - Electroencephalogram abnormal [Recovering/Resolving]
  - Chromaturia [Recovering/Resolving]
  - Gastrointestinal inflammation [Unknown]
  - Posterior reversible encephalopathy syndrome [Recovering/Resolving]
  - Urine output decreased [Recovering/Resolving]
  - Altered state of consciousness [Recovering/Resolving]
  - Seizure [Recovering/Resolving]
  - Abdominal pain [Recovered/Resolved]

NARRATIVE: CASE EVENT DATE: 200605
